FAERS Safety Report 14153103 (Version 3)
Quarter: 2018Q1

REPORT INFORMATION
  Report Type: Spontaneous
  Country: US (occurrence: US)
  Receive Date: 20171102
  Receipt Date: 20180110
  Transmission Date: 20180508
  Serious: No
  Sender: FDA-Public Use
  Company Number: US-PFIZER INC-2017467977

PATIENT

DRUGS (2)
  1. HEPARIN SODIUM. [Suspect]
     Active Substance: HEPARIN SODIUM
     Dosage: UNK, (7.5 CC/HR)
     Route: 042
  2. SODIUM CHLORIDE. [Suspect]
     Active Substance: SODIUM CHLORIDE
     Dosage: UNK, (7.5 CC/HR)
     Route: 042

REACTIONS (3)
  - Activated partial thromboplastin time ratio abnormal [Unknown]
  - Troponin increased [Unknown]
  - Incorrect drug administration rate [Unknown]

NARRATIVE: CASE EVENT DATE: 20170109
